FAERS Safety Report 20775173 (Version 1)
Quarter: 2022Q2

REPORT INFORMATION
  Report Type: Report from Study
  Country: US (occurrence: US)
  Receive Date: 20220502
  Receipt Date: 20220502
  Transmission Date: 20220721
  Serious: Yes (Hospitalization, Other)
  Sender: FDA-Public Use
  Company Number: US-ACTELION-A-NJ2018-177996

PATIENT
  Age: 78 Year
  Sex: Female
  Weight: 69.841 kg

DRUGS (3)
  1. TRACLEER [Suspect]
     Active Substance: BOSENTAN
     Indication: Pulmonary arterial hypertension
     Dosage: 125 MG, BID
     Route: 048
     Dates: start: 20060502
  2. TRACLEER [Suspect]
     Active Substance: BOSENTAN
     Dosage: TRACLEER 125 MG  1 TABLET BY MOUTH  TWICE A DAILY
     Route: 048
     Dates: start: 20210217
  3. ELIQUIS [Concomitant]
     Active Substance: APIXABAN

REACTIONS (14)
  - Hospitalisation [Unknown]
  - Mitral valve replacement [Unknown]
  - Paravalvular regurgitation [Recovered/Resolved]
  - Cardiac operation [Unknown]
  - Cardiac pacemaker replacement [Unknown]
  - Tricuspid valve repair [Unknown]
  - Surgery [Unknown]
  - Dyspnoea exertional [Unknown]
  - Oedema peripheral [Not Recovered/Not Resolved]
  - Feeling abnormal [Not Recovered/Not Resolved]
  - Glaucoma [Unknown]
  - Macular degeneration [Unknown]
  - Fatigue [Unknown]
  - Palpitations [Unknown]

NARRATIVE: CASE EVENT DATE: 20180701
